FAERS Safety Report 7732581-4 (Version None)
Quarter: 2011Q3

REPORT INFORMATION
  Report Type: 
  Country: None (occurrence: None)
  Receive Date: 20110906
  Receipt Date: 20110825
  Transmission Date: 20111222
  Serious: Yes (Hospitalization, Other)
  Sender: FDA-Public Use
  Company Number: US-BAYER-2011-035051

PATIENT
  Age: 26 Year
  Sex: Female
  Weight: 117.91 kg

DRUGS (5)
  1. YASMIN [Suspect]
     Indication: ORAL CONTRACEPTION
     Dosage: UNK
     Dates: start: 20020101, end: 20090101
  2. PROZAC [Concomitant]
  3. YAZ [Suspect]
     Indication: ORAL CONTRACEPTION
     Dosage: UNK
     Dates: start: 20020101, end: 20090101
  4. LISINOPRIL [Concomitant]
  5. ORTHO TRI-CYCLEN [Concomitant]

REACTIONS (10)
  - MUSCLE SPASMS [None]
  - CHOLECYSTECTOMY [None]
  - ABDOMINAL PAIN UPPER [None]
  - DIARRHOEA [None]
  - NAUSEA [None]
  - INSOMNIA [None]
  - CHOLECYSTITIS CHRONIC [None]
  - DEPRESSION [None]
  - BILIARY DYSKINESIA [None]
  - VOMITING [None]
